FAERS Safety Report 7168243-4 (Version None)
Quarter: 2010Q4

REPORT INFORMATION
  Report Type: 
  Country: None (occurrence: None)
  Receive Date: 20101216
  Receipt Date: 20101201
  Transmission Date: 20110411
  Serious: Yes (Hospitalization)
  Sender: FDA-Public Use
  Company Number: NL-GENENTECH-309331

PATIENT
  Sex: Female
  Weight: 55 kg

DRUGS (19)
  1. RITUXIMAB [Suspect]
     Indication: DIFFUSE LARGE B-CELL LYMPHOMA
     Dosage: 700 MG, UNK
     Route: 042
     Dates: start: 20101015
  2. RITUXIMAB [Suspect]
     Dosage: 700 MG, UNK
     Route: 042
     Dates: start: 20101112
  3. RITUXIMAB [Suspect]
     Dosage: 375 MG/M2, UNK
     Route: 042
     Dates: start: 20100917
  4. CYCLOPHOSPHAMIDE [Suspect]
     Indication: DIFFUSE LARGE B-CELL LYMPHOMA
     Dosage: 1300 MG, UNK
     Route: 042
     Dates: start: 20101015
  5. CYCLOPHOSPHAMIDE [Suspect]
     Dosage: 1300 MG, UNK
     Route: 042
     Dates: start: 20101112
  6. DOXORUBICIN [Suspect]
     Indication: DIFFUSE LARGE B-CELL LYMPHOMA
     Dosage: 87 MG, UNK
     Route: 042
     Dates: start: 20101015
  7. DOXORUBICIN [Suspect]
     Dosage: 87 MG, UNK
     Route: 042
     Dates: start: 20101112
  8. DOXORUBICIN [Suspect]
     Dosage: 87 MG, UNK
     Route: 042
     Dates: start: 20100917
  9. PREDNISONE [Suspect]
     Indication: DIFFUSE LARGE B-CELL LYMPHOMA
     Dosage: 100 MG, UNK
     Route: 048
     Dates: start: 20101015
  10. PREDNISONE [Suspect]
     Dosage: 100 MG, UNK
     Route: 048
     Dates: start: 20101112
  11. PREDNISONE [Suspect]
     Dosage: 100 MG, UNK
     Route: 048
     Dates: start: 20100917
  12. VINCRISTINE [Suspect]
     Indication: DIFFUSE LARGE B-CELL LYMPHOMA
     Dosage: 2 MG, UNK
     Route: 042
     Dates: start: 20101015
  13. VINCRISTINE [Suspect]
     Dosage: 2 MG, UNK
     Route: 042
     Dates: start: 20101112
  14. VINCRISTINE [Suspect]
     Dosage: UNK
     Route: 042
     Dates: start: 20100917
  15. G-CSF [Suspect]
     Indication: DIFFUSE LARGE B-CELL LYMPHOMA
     Dosage: 6 MG, UNK
     Route: 058
     Dates: start: 20101018
  16. G-CSF [Suspect]
     Dosage: 6 MG, UNK
     Route: 058
     Dates: start: 20100920
  17. PIPERACILLIN AND TAZOBACTAM [Concomitant]
     Indication: FEBRILE NEUTROPENIA
     Dosage: 45 MG, UNK
     Route: 042
     Dates: start: 20100925, end: 20100927
  18. GENTAMICIN [Concomitant]
     Indication: FEBRILE NEUTROPENIA
     Dosage: 240 MG, UNK
     Route: 042
     Dates: start: 20100925, end: 20100927
  19. VALACICLOVIR [Concomitant]
     Indication: HERPES VIRUS INFECTION
     Dosage: 1000 MG, UNK
     Route: 048
     Dates: start: 20100925, end: 20101026

REACTIONS (6)
  - MENINGITIS VIRAL [None]
  - OPPORTUNISTIC INFECTION [None]
  - ORAL HERPES [None]
  - PNEUMOCYSTIS JIROVECI PNEUMONIA [None]
  - PULMONARY EMBOLISM [None]
  - SOMNOLENCE [None]
